FAERS Safety Report 9948666 (Version 1)
Quarter: 2014Q1

REPORT INFORMATION
  Report Type: Spontaneous
  Country: US (occurrence: None)
  Receive Date: 20140122
  Receipt Date: 20140122
  Transmission Date: 20141002
  Serious: Yes (Other)
  Sender: FDA-Public Use
  Company Number: AEGR000220

PATIENT
  Age: 65 Year
  Sex: Female
  Weight: 55.3 kg

DRUGS (5)
  1. JUXTAPID [Suspect]
     Indication: TYPE IIA HYPERLIPIDAEMIA
     Dosage: 5 MG, UNK, ORAL
     Route: 048
     Dates: start: 2013, end: 2013
  2. LIPITOR (ATORVASTATIN CALCIUM) [Concomitant]
  3. ZETIA (EZETIMIBE) [Concomitant]
  4. MULTIPLE (VITAMINS NOS) [Concomitant]
  5. CALCIUM (CALCIUM) [Concomitant]

REACTIONS (1)
  - Hepatic enzyme increased [None]
